FAERS Safety Report 12040183 (Version 3)
Quarter: 2016Q3

REPORT INFORMATION
  Report Type: Spontaneous
  Country: US (occurrence: US)
  Receive Date: 20160208
  Receipt Date: 20160803
  Transmission Date: 20161109
  Serious: Yes (Other)
  Sender: FDA-Public Use
  Company Number: US-BAYER-2016-021471

PATIENT
  Age: 59 Year
  Sex: Male
  Weight: 72.56 kg

DRUGS (4)
  1. CIPRO [Suspect]
     Active Substance: CIPROFLOXACIN HYDROCHLORIDE
     Dosage: UNK
  2. LEVAQUIN [Suspect]
     Active Substance: LEVOFLOXACIN
     Indication: INFECTION
     Dosage: DAILY DOSE 500 MG
     Dates: start: 20040705, end: 20040710
  3. AVELOX [Suspect]
     Active Substance: MOXIFLOXACIN HYDROCHLORIDE
     Indication: PNEUMONIA
     Dosage: 400 MG, UNK
     Dates: start: 20111205, end: 20111205
  4. LEVAQUIN [Suspect]
     Active Substance: LEVOFLOXACIN
     Indication: INFECTION
     Dosage: DAILY DOSE 500 MG
     Dates: start: 20111222, end: 20111229

REACTIONS (8)
  - Neuropathy peripheral [Not Recovered/Not Resolved]
  - Mental disorder [None]
  - Pain [Not Recovered/Not Resolved]
  - Musculoskeletal injury [None]
  - Nervous system disorder [None]
  - Peripheral nerve injury [Not Recovered/Not Resolved]
  - Cardiovascular disorder [None]
  - Skin injury [None]

NARRATIVE: CASE EVENT DATE: 20120209
